FAERS Safety Report 25774092 (Version 2)
Quarter: 2025Q3

REPORT INFORMATION
  Report Type: Spontaneous
  Country: LB (occurrence: LB)
  Receive Date: 20250908
  Receipt Date: 20250930
  Transmission Date: 20251020
  Serious: Yes (Hospitalization, Other)
  Sender: NOVO NORDISK
  Company Number: LB-NOVOPROD-1510078

PATIENT
  Sex: Male
  Weight: 85 kg

DRUGS (1)
  1. NORDITROPIN [Suspect]
     Active Substance: SOMATROPIN
     Indication: Muscle building therapy
     Dosage: 2 IU, QD

REACTIONS (3)
  - Hypoglycaemic seizure [Unknown]
  - Hypoglycaemia [Unknown]
  - Product use in unapproved indication [Unknown]
